FAERS Safety Report 5134582-1 (Version None)
Quarter: 2006Q4

REPORT INFORMATION
  Report Type: 
  Country: None (occurrence: None)
  Receive Date: 20061025
  Receipt Date: 20060106
  Transmission Date: 20070319
  Serious: Yes (Other)
  Sender: FDA-Public Use
  Company Number: US-GLAXOSMITHKLINE-A0588183A

PATIENT
  Age: 59 Year
  Sex: Male

DRUGS (10)
  1. AVANDIA [Suspect]
     Dosage: 8MG PER DAY
     Route: 048
     Dates: end: 20050624
  2. ACTOS [Suspect]
     Indication: DIABETES MELLITUS
     Dosage: 45MG PER DAY
     Route: 048
     Dates: start: 20001213, end: 20030918
  3. GLUCOVANCE [Concomitant]
  4. NORVASC [Concomitant]
  5. ALTACE [Concomitant]
  6. HYDROCHLOROTHIAZIDE [Concomitant]
  7. MICARDIS [Concomitant]
  8. MULTI-VITAMIN [Concomitant]
  9. PRANDIN [Concomitant]
  10. TOPROL-XL [Concomitant]

REACTIONS (6)
  - CATARACT [None]
  - MACULAR OEDEMA [None]
  - MACULAR PSEUDOHOLE [None]
  - RASH [None]
  - SWELLING [None]
  - VISUAL ACUITY REDUCED [None]
